FAERS Safety Report 9438175 (Version 1)
Quarter: 2013Q3

REPORT INFORMATION
  Report Type: Spontaneous
  Country: US (occurrence: US)
  Receive Date: 20130802
  Receipt Date: 20130802
  Transmission Date: 20140515
  Serious: No
  Sender: FDA-Public Use
  Company Number: US-BRISTOL-MYERS SQUIBB COMPANY-16865669

PATIENT
  Age: 65 Year
  Sex: Male
  Weight: 68.03 kg

DRUGS (1)
  1. COUMADIN [Suspect]
     Indication: ATRIAL FIBRILLATION
     Dosage: 5MG:ONCE DAILY 4DAYS/WEEK,7.5MG:1/DAY 3DAYS/WEEK

REACTIONS (1)
  - Rash pruritic [Not Recovered/Not Resolved]
